FAERS Safety Report 4754122-6 (Version None)
Quarter: 2005Q3

REPORT INFORMATION
  Report Type: 
  Country: None (occurrence: None)
  Receive Date: 20050825
  Receipt Date: 20040922
  Transmission Date: 20060218
  Serious: Yes (Other)
  Sender: FDA-Public Use
  Company Number: HQWYE342627SEP04

PATIENT
  Age: 2 Year
  Sex: Male
  Weight: 11.35 kg

DRUGS (1)
  1. CHILDREN'S ADVIL [Suspect]
     Indication: PYREXIA
     Dosage: 1 TSP 1X PER 6 HR, ORAL
     Route: 048
     Dates: start: 20040915, end: 20040915

REACTIONS (4)
  - RASH ERYTHEMATOUS [None]
  - RASH MACULAR [None]
  - RASH PRURITIC [None]
  - SKIN DISCOLOURATION [None]
